FAERS Safety Report 17727845 (Version 2)
Quarter: 2020Q3

REPORT INFORMATION
  Report Type: Spontaneous
  Country: US (occurrence: US)
  Receive Date: 20200430
  Receipt Date: 20200925
  Transmission Date: 20201102
  Serious: No
  Sender: FDA-Public Use
  Company Number: US-PFIZER INC-2020173971

PATIENT
  Age: 73 Year
  Sex: Female
  Weight: 72.57 kg

DRUGS (2)
  1. IBRANCE [Suspect]
     Active Substance: PALBOCICLIB
     Indication: BREAST CANCER STAGE III
     Dosage: 125 MG, CYCLIC (EVERY DAY FOR THREE WEEKS, THEN OFF ONE WEEK)
     Route: 048
     Dates: start: 20200427
  2. LETROZOLE. [Concomitant]
     Active Substance: LETROZOLE
     Dosage: UNK

REACTIONS (1)
  - Headache [Unknown]
